FAERS Safety Report 4597399-2 (Version None)
Quarter: 2005Q1

REPORT INFORMATION
  Report Type: 
  Country: None (occurrence: None)
  Receive Date: 20050228
  Receipt Date: 20050228
  Transmission Date: 20050727
  Serious: Yes (Other)
  Sender: FDA-Public Use
  Company Number: None

PATIENT
  Age: 73 Year
  Sex: Female

DRUGS (2)
  1. NEURONTIN [Suspect]
     Indication: DIABETIC NEUROPATHY
     Dosage: 600 MG DAILY
  2. NEURONTIN [Suspect]
     Indication: NEUROPATHY
     Dosage: 600 MG DAILY

REACTIONS (4)
  - DIABETIC NEUROPATHY [None]
  - DRUG INEFFECTIVE [None]
  - NEUROPATHY [None]
  - PARAESTHESIA [None]
